FAERS Safety Report 5215959-2 (Version None)
Quarter: 2007Q1

REPORT INFORMATION
  Report Type: 
  Country: None (occurrence: None)
  Receive Date: 20070123
  Receipt Date: 20070111
  Transmission Date: 20070707
  Serious: Yes (Hospitalization)
  Sender: FDA-Public Use
  Company Number: US-BRISTOL-MYERS SQUIBB COMPANY-13641394

PATIENT
  Age: 78 Year
  Sex: Female

DRUGS (7)
  1. PRAVASTATIN SODIUM [Suspect]
  2. BUFFERIN [Interacting]
  3. CIMETIDINE HCL [Interacting]
  4. DONEPEZIL HCL [Interacting]
  5. MECOBALAMIN [Interacting]
  6. NORVASC [Interacting]
  7. PHENOBARBITAL TAB [Interacting]

REACTIONS (3)
  - CEREBRAL HAEMORRHAGE [None]
  - DRUG INTERACTION [None]
  - LOSS OF CONSCIOUSNESS [None]
